FAERS Safety Report 9738376 (Version 1)
Quarter: 2013Q4

REPORT INFORMATION
  Report Type: Report from Study
  Country: US (occurrence: US)
  Receive Date: 20131208
  Receipt Date: 20131208
  Transmission Date: 20140711
  Serious: Yes (Other)
  Sender: FDA-Public Use
  Company Number: US-ROCHE-1315205

PATIENT
  Age: 59 Year
  Sex: Female

DRUGS (6)
  1. HERCEPTIN [Suspect]
     Indication: BREAST CANCER METASTATIC
     Dosage: FIRST LINE
     Route: 065
  2. HERCEPTIN [Suspect]
     Dosage: SECOND LINE
     Route: 065
  3. HERCEPTIN [Suspect]
     Dosage: THIRD LINE
     Route: 065
  4. PERJETA [Suspect]
     Indication: BREAST CANCER METASTATIC
     Route: 065
  5. ARIMIDEX [Concomitant]
     Dosage: FIRST LINE
     Route: 065
  6. ABRAXANE [Concomitant]
     Dosage: SECOND LINE
     Route: 065

REACTIONS (1)
  - Cardiotoxicity [Unknown]
